FAERS Safety Report 4691900-6 (Version None)
Quarter: 2005Q2

REPORT INFORMATION
  Report Type: 
  Country: None (occurrence: None)
  Receive Date: 20050615
  Receipt Date: 20050615
  Transmission Date: 20051028
  Serious: Yes (Other)
  Sender: FDA-Public Use
  Company Number: None

PATIENT
  Age: 56 Year
  Sex: Female

DRUGS (4)
  1. ALBUTEROL [Suspect]
     Indication: ASTHMA
     Dosage: 2 PUFFS EVERY 4 HOURS AS NEEDED
     Route: 055
     Dates: start: 20050501, end: 20050601
  2. ALBUTEROL [Suspect]
     Indication: HYPERSENSITIVITY
     Dosage: 2 PUFFS EVERY 4 HOURS AS NEEDED
     Route: 055
     Dates: start: 20050501, end: 20050601
  3. LEVOXYL [Concomitant]
  4. FLONASE [Concomitant]

REACTIONS (1)
  - DRUG INEFFECTIVE [None]
